FAERS Safety Report 8816453 (Version 2)
Quarter: 2012Q4

REPORT INFORMATION
  Report Type: Spontaneous
  Country: FR (occurrence: None)
  Receive Date: 20120927
  Receipt Date: 20121005
  Transmission Date: 20130627
  Serious: Yes (Death)
  Sender: FDA-Public Use
  Company Number: 2012GMK003729

PATIENT
  Age: 37 Year
  Sex: Male
  Weight: 62 kg

DRUGS (3)
  1. ROPINIROLE [Suspect]
     Indication: DRUG USE FOR UNKNOWN INDICATION
  2. ALCOHOL (ETHANOL) [Suspect]
     Indication: DRUG USE FOR UNKNOWN INDICATION
  3. PARACETAMOL (PARACETAMOL) [Concomitant]

REACTIONS (7)
  - Toxicity to various agents [None]
  - Alcohol use [None]
  - Overdose [None]
  - Lividity [None]
  - Skin discolouration [None]
  - Pulmonary oedema [None]
  - Hepatic congestion [None]
